FAERS Safety Report 4796693-X (Version None)
Quarter: 2005Q4

REPORT INFORMATION
  Report Type: 
  Country: None (occurrence: None)
  Receive Date: 20051003
  Receipt Date: 20040824
  Transmission Date: 20060501
  Serious: Yes (Other)
  Sender: FDA-Public Use
  Company Number: PHEH2004US09198

PATIENT
  Sex: Female

DRUGS (5)
  1. ESTALIS COMBIPATCH(ESTRADIOL, NORETHISTERONE ACETATE) TRANS-THERAPEUTI [Suspect]
     Dosage: TRANSDERMAL
     Route: 062
     Dates: start: 19920101, end: 19950101
  2. PREMARIN [Suspect]
     Dates: start: 19860101, end: 19920101
  3. PREMPRO [Suspect]
     Dates: start: 19950101, end: 19990101
  4. PROVERA [Suspect]
     Dates: start: 19860101, end: 19920101
  5. MEDROXYPROGESTERONE ACETATE [Suspect]
     Dates: start: 19860101, end: 19920101

REACTIONS (1)
  - BREAST CANCER [None]
